FAERS Safety Report 20739911 (Version 3)
Quarter: 2023Q2

REPORT INFORMATION
  Report Type: Spontaneous
  Country: JP (occurrence: JP)
  Receive Date: 20220422
  Receipt Date: 20230623
  Transmission Date: 20230722
  Serious: Yes (Life-Threatening, Hospitalization)
  Sender: FDA-Public Use
  Company Number: JP-NOVARTISPH-NVSC2022JP093074

PATIENT
  Sex: Male

DRUGS (2)
  1. LUTATHERA [Suspect]
     Active Substance: LUTETIUM OXODOTREOTIDE LU-177
     Indication: Small intestine neuroendocrine tumour
     Dosage: 7.4 GBQ, QD
     Route: 042
     Dates: start: 20220414, end: 20220414
  2. ARGININE\LYSINE [Suspect]
     Active Substance: ARGININE\LYSINE
     Indication: Nephroprotective therapy
     Dosage: UNK
     Route: 042
     Dates: start: 20220414, end: 20220414

REACTIONS (1)
  - Carcinoid syndrome [Recovering/Resolving]

NARRATIVE: CASE EVENT DATE: 20220415
